FAERS Safety Report 5941085-0 (Version None)
Quarter: 2008Q4

REPORT INFORMATION
  Report Type: 
  Country: None (occurrence: None)
  Receive Date: 20081104
  Receipt Date: 20081027
  Transmission Date: 20090506
  Serious: No
  Sender: FDA-Public Use
  Company Number: US-B.I. PHARMACEUTICALS,INC./RIDGEFIELD-2008-BP-16414BP

PATIENT
  Age: 49 Year
  Sex: Female

DRUGS (2)
  1. MIRAPEX [Suspect]
     Indication: TREMOR
     Dosage: .5MG
     Route: 048
     Dates: start: 20081014
  2. ESTROGENIC SUBSTANCE [Concomitant]
     Route: 048

REACTIONS (1)
  - TREMOR [None]
